FAERS Safety Report 5255671-7 (Version None)
Quarter: 2007Q1

REPORT INFORMATION
  Report Type: 
  Country: None (occurrence: None)
  Receive Date: 20070305
  Receipt Date: 20070221
  Transmission Date: 20070707
  Serious: Yes (Hospitalization)
  Sender: FDA-Public Use
  Company Number: AU-PFIZER INC-2006124340

PATIENT
  Sex: Male
  Weight: 65.2 kg

DRUGS (7)
  1. SU-011,248 [Suspect]
     Indication: METASTATIC RENAL CELL CARCINOMA
     Route: 048
  2. ASASANTIN [Suspect]
     Dates: start: 20000606, end: 20061021
  3. CARTIA XT [Suspect]
     Dates: start: 20000101, end: 20061001
  4. DEXAMETHASONE [Concomitant]
     Route: 048
     Dates: start: 20050917, end: 20061207
  5. SPIRIVA [Concomitant]
     Route: 055
     Dates: start: 20040301, end: 20061207
  6. TERBUTALINE SULFATE [Concomitant]
     Route: 055
     Dates: start: 20030701, end: 20061207
  7. SYMBICORT [Concomitant]
     Route: 055
     Dates: start: 20030501, end: 20061207

REACTIONS (1)
  - PEPTIC ULCER [None]
